FAERS Safety Report 8476472-2 (Version None)
Quarter: 2012Q2

REPORT INFORMATION
  Report Type: 
  Country: None (occurrence: None)
  Receive Date: 20120622
  Receipt Date: 20120614
  Transmission Date: 20120825
  Serious: Yes (Hospitalization, Other)
  Sender: FDA-Public Use
  Company Number: 2011SP027909

PATIENT
  Age: 32 Year
  Sex: Female
  Weight: 112 kg

DRUGS (17)
  1. IMPLANON [Suspect]
  2. IMPLANON [Suspect]
  3. IMPLANON [Suspect]
  4. IMPLANON [Suspect]
  5. IMPLANON [Suspect]
  6. IMPLANON [Suspect]
  7. IMPLANON [Suspect]
  8. IMPLANON [Suspect]
  9. IMPLANON [Suspect]
     Indication: CONTRACEPTION
     Dosage: 65 MG
     Dates: start: 20090206, end: 20100922
  10. IMPLANON [Suspect]
     Indication: CONTRACEPTION
     Dosage: 65 MG
     Dates: start: 20090223, end: 20100427
  11. IMPLANON [Suspect]
     Indication: CONTRACEPTION
     Dosage: 65 MG
     Dates: start: 20090121, end: 20090126
  12. IMPLANON [Suspect]
     Indication: CONTRACEPTION
     Dosage: 65 MG
     Dates: start: 20090417, end: 20100622
  13. IMPLANON [Suspect]
     Indication: CONTRACEPTION
     Dosage: 65 MG
     Dates: start: 20090126, end: 20090128
  14. IMPLANON [Suspect]
     Indication: CONTRACEPTION
     Dosage: 65 MG
     Dates: start: 20090323, end: 20090615
  15. IMPLANON [Suspect]
     Indication: CONTRACEPTION
     Dosage: 65 MG
     Dates: start: 20090515, end: 20090601
  16. IMPLANON [Suspect]
  17. IMPLANON [Suspect]

REACTIONS (11)
  - PERIPHERAL ISCHAEMIA [None]
  - METRORRHAGIA [None]
  - ARTERIAL STENOSIS [None]
  - LIBIDO DECREASED [None]
  - IMPLANT SITE HYPERSENSITIVITY [None]
  - IMPLANT SITE REACTION [None]
  - PERIPHERAL EMBOLISM [None]
  - HYPOAESTHESIA [None]
  - HEADACHE [None]
  - MENORRHAGIA [None]
  - EMBOLISM ARTERIAL [None]
